FAERS Safety Report 5558454-3 (Version None)
Quarter: 2007Q4

REPORT INFORMATION
  Report Type: 
  Country: None (occurrence: None)
  Receive Date: 20071130
  Receipt Date: 20070914
  Transmission Date: 20080405
  Serious: No
  Sender: FDA-Public Use
  Company Number: US200709000299

PATIENT
  Age: 72 Year
  Sex: Female

DRUGS (11)
  1. BYETTA [Suspect]
     Indication: TYPE 2 DIABETES MELLITUS
     Dosage: SEE IMAGE, INTRAVENOUS
     Route: 042
     Dates: start: 20070702, end: 20070731
  2. BYETTA [Suspect]
     Indication: TYPE 2 DIABETES MELLITUS
     Dosage: SEE IMAGE, INTRAVENOUS
     Route: 042
     Dates: start: 20070701, end: 20070801
  3. BYETTA [Suspect]
     Indication: TYPE 2 DIABETES MELLITUS
     Dosage: SEE IMAGE, INTRAVENOUS
     Route: 042
     Dates: start: 20070801
  4. BYETTA [Suspect]
     Indication: TYPE 2 DIABETES MELLITUS
     Dosage: SEE IMAGE, INTRAVENOUS
     Route: 042
     Dates: start: 20070801
  5. BYETTA [Suspect]
     Indication: TYPE 2 DIABETES MELLITUS
     Dosage: SEE IMAGE, INTRAVENOUS
     Route: 042
     Dates: start: 20070801
  6. BYETTA [Suspect]
  7. EXENATIDE 10MCG PEN, DISPOSABLE DEVICE (EXENATIDE PEN (10MCG)) PEN,DIS [Concomitant]
  8. AVANDIA [Concomitant]
  9. ACTOS [Concomitant]
  10. AMARYL [Concomitant]
  11. GLIPIZIDE [Concomitant]

REACTIONS (6)
  - BLOOD GLUCOSE DECREASED [None]
  - BLOOD GLUCOSE INCREASED [None]
  - FATIGUE [None]
  - INJECTION SITE PRURITUS [None]
  - PALLOR [None]
  - PARAESTHESIA ORAL [None]
